FAERS Safety Report 5429145-4 (Version None)
Quarter: 2007Q3

REPORT INFORMATION
  Report Type: 
  Country: None (occurrence: None)
  Receive Date: 20070829
  Receipt Date: 20070828
  Transmission Date: 20080115
  Serious: Yes (Hospitalization)
  Sender: FDA-Public Use
  Company Number: US-BRISTOL-MYERS SQUIBB COMPANY-13835087

PATIENT
  Age: 9 Year
  Sex: Female
  Weight: 39 kg

DRUGS (7)
  1. CETUXIMAB [Suspect]
     Indication: ANAPLASTIC ASTROCYTOMA
     Route: 042
     Dates: start: 20050829, end: 20070702
  2. IRINOTECAN HCL [Suspect]
     Indication: NEOPLASM
     Route: 042
     Dates: start: 20050829
  3. BACTRIM [Concomitant]
     Dosage: BACTRIM 80MG PO BID M,T,W
     Route: 048
     Dates: start: 20051010
  4. LOPERAMIDE HCL [Concomitant]
     Indication: DIARRHOEA
     Dosage: LOPERAMIDE 2MG PO Q2H PRN DIARHHEA
     Route: 048
     Dates: start: 20050831
  5. VISTARIL [Concomitant]
     Indication: VOMITING
     Dosage: VISTARIL 25MG PO A4H PRN N/V
     Route: 048
     Dates: start: 20050829
  6. COLACE [Concomitant]
     Indication: CONSTIPATION
     Dosage: COLACE : 100MG PO QD PRN CONSTIPATION
     Route: 048
     Dates: start: 20070309
  7. KYTRIL [Concomitant]
     Indication: VOMITING
     Dosage: KYTRIL :600MG PO BID PRN N/V
     Route: 048
     Dates: start: 20060104

REACTIONS (2)
  - HEADACHE [None]
  - PYREXIA [None]
